FAERS Safety Report 22606345 (Version 1)
Quarter: 2023Q2

REPORT INFORMATION
  Report Type: Report from Study
  Country: US (occurrence: US)
  Receive Date: 20230615
  Receipt Date: 20230615
  Transmission Date: 20230721
  Serious: Yes (Other)
  Sender: FDA-Public Use
  Company Number: US-002147023-NVSC2023US132283

PATIENT
  Sex: Female
  Weight: 138.79 kg

DRUGS (9)
  1. COSENTYX [Suspect]
     Active Substance: SECUKINUMAB
     Indication: Hidradenitis
     Dosage: UNK
     Route: 065
  2. COSENTYX [Suspect]
     Active Substance: SECUKINUMAB
     Indication: Psoriasis
  3. CLINDAMYCIN [Suspect]
     Active Substance: CLINDAMYCIN
     Indication: Hidradenitis
     Dosage: UNK
     Route: 065
  4. MINOCYCLINE [Suspect]
     Active Substance: MINOCYCLINE HYDROCHLORIDE
     Indication: Hidradenitis
     Dosage: UNK
     Route: 065
  5. DOXYCYCLINE [Suspect]
     Active Substance: DOXYCYCLINE
     Indication: Hidradenitis
     Dosage: UNK
     Route: 065
  6. PREGABALIN [Suspect]
     Active Substance: PREGABALIN
     Indication: Hidradenitis
     Dosage: UNK
     Route: 065
  7. KENALOG [Suspect]
     Active Substance: TRIAMCINOLONE ACETONIDE
     Indication: Hidradenitis
     Dosage: UNK
     Route: 065
  8. HIBICLENS [Suspect]
     Active Substance: CHLORHEXIDINE GLUCONATE
     Indication: Hidradenitis
     Dosage: UNK (SINCE 1 YEAR)
     Route: 065
  9. HUMIRA [Suspect]
     Active Substance: ADALIMUMAB
     Indication: Hidradenitis
     Dosage: UNK (SINCE 1 YEAR)
     Route: 065

REACTIONS (30)
  - Hepatitis C [Unknown]
  - Neoplasm [Unknown]
  - Dermatitis acneiform [Unknown]
  - Fistula [Unknown]
  - Paranasal sinus hypersecretion [Unknown]
  - Sebaceous hyperplasia [Unknown]
  - Rash [Unknown]
  - Rash erythematous [Unknown]
  - Swelling [Unknown]
  - Tenderness [Unknown]
  - Hidradenitis [Unknown]
  - Condition aggravated [Unknown]
  - Skin irritation [Unknown]
  - Papule [Unknown]
  - Arthropathy [Unknown]
  - Seborrhoeic keratosis [Unknown]
  - Inflammation [Unknown]
  - Eyelid margin crusting [Unknown]
  - Nasal mucosa telangiectasia [Unknown]
  - Salivary gland enlargement [Unknown]
  - Subcutaneous abscess [Unknown]
  - Skin discolouration [Unknown]
  - Acrochordon [Unknown]
  - Psoriasis [Unknown]
  - Skin exfoliation [Unknown]
  - Skin plaque [Unknown]
  - Skin lesion [Unknown]
  - Product use in unapproved indication [Unknown]
  - Drug ineffective [Unknown]
  - Treatment failure [Unknown]
